FAERS Safety Report 5733822-5 (Version None)
Quarter: 2008Q2

REPORT INFORMATION
  Report Type: 
  Country: None (occurrence: None)
  Receive Date: 20080509
  Receipt Date: 20080428
  Transmission Date: 20081010
  Serious: Yes (Hospitalization, Other)
  Sender: FDA-Public Use
  Company Number: US-ELI_LILLY_AND_COMPANY-US200803006145

PATIENT
  Sex: Female
  Weight: 90.703 kg

DRUGS (11)
  1. BYETTA [Suspect]
     Indication: TYPE 2 DIABETES MELLITUS
     Dosage: 5 UG, 2/D
     Route: 058
     Dates: start: 20080201
  2. MS CONTIN [Concomitant]
     Indication: BACK PAIN
  3. ENDOCET [Concomitant]
     Indication: BACK PAIN
     Dosage: UNK, AS NEEDED
  4. MUSCLE RELAXANTS [Concomitant]
  5. LISINOPRIL [Concomitant]
     Indication: BLOOD PRESSURE
  6. XANAX [Concomitant]
     Indication: ANXIETY
  7. AMBIEN [Concomitant]
     Indication: ANXIETY
  8. SEROQUEL [Concomitant]
  9. LEXAPRO [Concomitant]
     Indication: DEPRESSION
  10. ETODOLAC [Concomitant]
  11. METFORMIN HCL [Concomitant]
     Indication: TYPE 2 DIABETES MELLITUS

REACTIONS (4)
  - ESCHERICHIA URINARY TRACT INFECTION [None]
  - PYELONEPHRITIS [None]
  - VOMITING [None]
  - WEIGHT DECREASED [None]
